FAERS Safety Report 8300055 (Version 6)
Quarter: 2016Q3

REPORT INFORMATION
  Report Type: Spontaneous
  Country: US (occurrence: US)
  Receive Date: 20111219
  Receipt Date: 20160811
  Transmission Date: 20161109
  Serious: Yes (Hospitalization, Disabling, Other)
  Sender: FDA-Public Use
  Company Number: US-ASTRAZENECA-2011SE56755

PATIENT
  Age: 824 Month
  Sex: Male

DRUGS (8)
  1. CRESTOR [Suspect]
     Active Substance: ROSUVASTATIN CALCIUM
     Indication: BLOOD CHOLESTEROL ABNORMAL
     Route: 048
  2. CRESTOR [Suspect]
     Active Substance: ROSUVASTATIN CALCIUM
     Indication: BLOOD CHOLESTEROL ABNORMAL
     Route: 048
     Dates: end: 201603
  3. OTHER MEDICATIONS [Concomitant]
     Active Substance: UNSPECIFIED INGREDIENT
  4. CRESTOR [Suspect]
     Active Substance: ROSUVASTATIN CALCIUM
     Indication: BLOOD CHOLESTEROL ABNORMAL
     Route: 048
     Dates: start: 2004
  5. ZOCOR [Concomitant]
     Active Substance: SIMVASTATIN
  6. ATENOLOL. [Suspect]
     Active Substance: ATENOLOL
     Route: 048
  7. LIPITOR [Concomitant]
     Active Substance: ATORVASTATIN CALCIUM
  8. ASPIRIN. [Concomitant]
     Active Substance: ASPIRIN
     Dosage: 81.0MG UNKNOWN

REACTIONS (12)
  - Peripheral arterial occlusive disease [Unknown]
  - Musculoskeletal disorder [Unknown]
  - Bone cancer [Unknown]
  - Coronary artery disease [Not Recovered/Not Resolved]
  - Blood cholesterol abnormal [Unknown]
  - Cardiac failure [Unknown]
  - Cardiac disorder [Unknown]
  - Renal failure [Unknown]
  - Neuropathy peripheral [Unknown]
  - Asthenia [Unknown]
  - Cerebrovascular accident [Unknown]
  - Blood pressure abnormal [Unknown]

NARRATIVE: CASE EVENT DATE: 201603
